FAERS Safety Report 24143264 (Version 1)
Quarter: 2024Q3

REPORT INFORMATION
  Report Type: Spontaneous
  Country: CN (occurrence: CN)
  Receive Date: 20240726
  Receipt Date: 20240726
  Transmission Date: 20241017
  Serious: Yes (Life-Threatening, Other)
  Sender: MERCK
  Company Number: CN-009507513-2407CHN012010

PATIENT
  Age: 28 Year
  Sex: Female

DRUGS (3)
  1. KEYTRUDA [Suspect]
     Active Substance: PEMBROLIZUMAB
     Indication: Breast neoplasm
     Dosage: 200 MG, ONCE
     Route: 041
     Dates: start: 20240702, end: 20240702
  2. CYCLOPHOSPHAMIDE [Suspect]
     Active Substance: CYCLOPHOSPHAMIDE
     Indication: Breast neoplasm
     Dosage: 0.96 G, ONCE
     Route: 041
     Dates: start: 20240702, end: 20240702
  3. EPIRUBICIN HYDROCHLORIDE [Suspect]
     Active Substance: EPIRUBICIN HYDROCHLORIDE
     Indication: Breast neoplasm
     Dosage: 144 MG, ONCE
     Route: 041
     Dates: start: 20240702, end: 20240702

REACTIONS (1)
  - Myelosuppression [Recovering/Resolving]

NARRATIVE: CASE EVENT DATE: 20240708
